FAERS Safety Report 5490865-7 (Version None)
Quarter: 2007Q4

REPORT INFORMATION
  Report Type: 
  Country: None (occurrence: None)
  Receive Date: 20071019
  Receipt Date: 20071008
  Transmission Date: 20080405
  Serious: Yes (Other)
  Sender: FDA-Public Use
  Company Number: TN-AMGEN-US237461

PATIENT
  Age: 55 Year
  Sex: Female
  Weight: 64 kg

DRUGS (7)
  1. ENBREL [Suspect]
     Indication: RHEUMATOID ARTHRITIS
     Route: 058
     Dates: start: 20070713, end: 20070716
  2. ISONIAZID [Suspect]
     Indication: TUBERCULOSIS
     Dosage: UNKNOWN
     Route: 065
     Dates: start: 20070701
  3. RIFADIN [Suspect]
     Indication: TUBERCULOSIS
     Dosage: UNKNOWN
     Route: 065
     Dates: start: 20070701
  4. METHOTREXATE [Concomitant]
     Route: 048
     Dates: start: 19940101
  5. ANALGAN [Concomitant]
     Route: 048
     Dates: start: 19940101
  6. PREDNISONE [Concomitant]
     Route: 048
     Dates: start: 19940101
  7. INDOCIN [Concomitant]
     Route: 054
     Dates: start: 19940101

REACTIONS (5)
  - ABDOMINAL PAIN UPPER [None]
  - BRONCHOSPASM [None]
  - HEADACHE [None]
  - HOT FLUSH [None]
  - SUFFOCATION FEELING [None]
